FAERS Safety Report 25312398 (Version 2)
Quarter: 2025Q3

REPORT INFORMATION
  Report Type: Spontaneous
  Country: US (occurrence: US)
  Receive Date: 20250514
  Receipt Date: 20250710
  Transmission Date: 20251021
  Serious: No
  Sender: BIOLOGICAL E. LIMITED
  Company Number: US-BELUSA-2025BELSPO0022

PATIENT

DRUGS (1)
  1. ENOXAPARIN SODIUM [Suspect]
     Active Substance: ENOXAPARIN SODIUM
     Indication: Product used for unknown indication
     Route: 065

REACTIONS (6)
  - Occupational exposure to product [Unknown]
  - Device malfunction [Unknown]
  - Injury associated with device [Unknown]
  - Pain in extremity [Unknown]
  - Swelling [Recovered/Resolved]
  - Traumatic haemorrhage [Unknown]
